FAERS Safety Report 9735088 (Version 2)
Quarter: 2013Q4

REPORT INFORMATION
  Report Type: Report from Study
  Country: US (occurrence: US)
  Receive Date: 20131206
  Receipt Date: 20131206
  Transmission Date: 20140711
  Serious: Yes (Other)
  Sender: FDA-Public Use
  Company Number: US-NOVOPROD-392137

PATIENT
  Age: 14 Year
  Sex: Male

DRUGS (2)
  1. NORDITROPIN FLEXPRO 10 MG/ML [Suspect]
     Indication: GROWTH RETARDATION
     Dosage: UNK
     Route: 058
     Dates: start: 201310, end: 20131103
  2. ZONEGRAN [Concomitant]
     Indication: EPILEPSY

REACTIONS (1)
  - Nephrolithiasis [Not Recovered/Not Resolved]
